FAERS Safety Report 20224704 (Version 1)
Quarter: 2021Q4

REPORT INFORMATION
  Report Type: Spontaneous
  Country: US (occurrence: US)
  Receive Date: 20211223
  Receipt Date: 20211223
  Transmission Date: 20220304
  Serious: Yes (Other)
  Sender: FDA-Public Use
  Company Number: US-PFIZER INC-202101770668

PATIENT
  Age: 48 Year
  Sex: Male
  Weight: 113.4 kg

DRUGS (1)
  1. SULFASALAZINE [Suspect]
     Active Substance: SULFASALAZINE
     Indication: Autoimmune disorder
     Dosage: 1000 MG, 2X/DAY (2000MG A DAY, TAKES 500MG - 2 IN THE MORNING AND 2 IN THE EVENING)

REACTIONS (7)
  - Neuropathy peripheral [Unknown]
  - Drug ineffective for unapproved indication [Unknown]
  - Off label use [Unknown]
  - Intentional product misuse [Unknown]
  - Eczema [Unknown]
  - Dyspepsia [Unknown]
  - Feeling abnormal [Unknown]
